FAERS Safety Report 5169394-6 (Version None)
Quarter: 2006Q4

REPORT INFORMATION
  Report Type: 
  Country: None (occurrence: None)
  Receive Date: 20061201
  Receipt Date: 20061127
  Transmission Date: 20070319
  Serious: Yes (Other)
  Sender: FDA-Public Use
  Company Number: S06-USA-04029-01

PATIENT
  Age: 83 Year
  Sex: Male
  Weight: 92.5338 kg

DRUGS (4)
  1. NAMENDA [Suspect]
     Indication: DEMENTIA ALZHEIMER'S TYPE
     Dates: start: 20040521
  2. NAMENDA [Suspect]
     Indication: DEMENTIA ALZHEIMER'S TYPE
     Dosage: 10 MG BID PO
     Route: 048
     Dates: end: 20060926
  3. NAMENDA [Suspect]
     Indication: DEMENTIA ALZHEIMER'S TYPE
     Dosage: 10 MG BID PO
     Route: 048
     Dates: start: 20060101
  4. NASONEX [Concomitant]

REACTIONS (10)
  - ALANINE AMINOTRANSFERASE DECREASED [None]
  - ALBUMIN GLOBULIN RATIO DECREASED [None]
  - ATELECTASIS [None]
  - BUNDLE BRANCH BLOCK RIGHT [None]
  - CONVULSION [None]
  - EOSINOPHIL PERCENTAGE INCREASED [None]
  - GLOMERULAR FILTRATION RATE DECREASED [None]
  - MONOCYTE PERCENTAGE INCREASED [None]
  - MYOCARDIAL INFARCTION [None]
  - QRS AXIS ABNORMAL [None]
